FAERS Safety Report 8691194 (Version 3)
Quarter: 2013Q1

REPORT INFORMATION
  Report Type: Spontaneous
  Country: US (occurrence: US)
  Receive Date: 20120730
  Receipt Date: 20130225
  Transmission Date: 20140127
  Serious: Yes (Hospitalization, Other)
  Sender: FDA-Public Use
  Company Number: US-BAYER-2012-072069

PATIENT
  Age: 22 Year
  Sex: Female
  Weight: 90.7 kg

DRUGS (12)
  1. YASMIN [Suspect]
     Indication: ACNE
     Dosage: UNK
     Dates: start: 2006, end: 2008
  2. YASMIN [Suspect]
     Indication: CONTRACEPTION
  3. YASMIN [Suspect]
     Indication: PREMENSTRUAL SYNDROME
  4. OCELLA [Suspect]
     Indication: ACNE
     Dosage: UNK
     Dates: start: 2008, end: 2012
  5. OCELLA [Suspect]
     Indication: CONTRACEPTION
  6. OCELLA [Suspect]
     Indication: PREMENSTRUAL SYNDROME
  7. NYSTATIN [Concomitant]
  8. METRONIDAZOLE [Concomitant]
     Dosage: 250 MG, UNK
  9. CIPROFLOXACIN [Concomitant]
     Dosage: 500 MG, UNK
  10. SERTRALINE HYDROCHLORIDE [Concomitant]
     Dosage: 50 MG, UNK
  11. IBUPROFEN [Concomitant]
  12. ANTIBIOTICS [Concomitant]

REACTIONS (8)
  - Gallbladder disorder [None]
  - Biliary dyskinesia [None]
  - Pain [None]
  - Deep vein thrombosis [None]
  - Myocardial infarction [None]
  - Cerebrovascular accident [None]
  - Pulmonary embolism [None]
  - Pain [None]
